FAERS Safety Report 9050030 (Version 1)
Quarter: 2013Q1

REPORT INFORMATION
  Report Type: Spontaneous
  Country: US (occurrence: US)
  Receive Date: 20130205
  Receipt Date: 20130205
  Transmission Date: 20140127
  Serious: No
  Sender: FDA-Public Use
  Company Number: US-GLAXOSMITHKLINE-A0998617A

PATIENT
  Age: 52 Year
  Sex: Female

DRUGS (6)
  1. ARIXTRA [Suspect]
     Indication: DEEP VEIN THROMBOSIS
     Dosage: 7.5MG PER DAY
     Route: 058
     Dates: start: 201204
  2. HYDROCODONE [Concomitant]
  3. SYNTHROID [Concomitant]
  4. GABAPENTIN [Concomitant]
  5. FLEXERIL [Concomitant]
  6. NEXIUM [Concomitant]

REACTIONS (3)
  - Hot flush [Unknown]
  - Contusion [Unknown]
  - Hyperaesthesia [Unknown]
